FAERS Safety Report 9108455 (Version 2)
Quarter: 2013Q2

REPORT INFORMATION
  Report Type: Spontaneous
  Country: US (occurrence: US)
  Receive Date: 20130222
  Receipt Date: 20130418
  Transmission Date: 20140414
  Serious: Yes (Life-Threatening, Hospitalization)
  Sender: FDA-Public Use
  Company Number: US-B.I. PHARMACEUTICALS,INC./RIDGEFIELD-2013-BI-04343BP

PATIENT
  Age: 88 Year
  Sex: Female

DRUGS (16)
  1. PRADAXA [Suspect]
     Indication: CEREBROVASCULAR ACCIDENT PROPHYLAXIS
     Dosage: 300 MG
     Route: 048
     Dates: start: 20120615, end: 20130204
  2. PRADAXA [Suspect]
     Indication: ATRIAL FIBRILLATION
  3. LOSARTAN [Concomitant]
     Indication: HYPERTENSION
     Dosage: 50 MG
  4. SOTALOL [Concomitant]
     Indication: HYPERTENSION
     Dosage: 80 MG
  5. PRAVASTATIN [Concomitant]
     Indication: HYPERTHYROIDISM
     Dosage: 20 MG
  6. FOLIC ACID [Concomitant]
     Indication: BLOOD FOLATE DECREASED
     Dosage: 1 MG
  7. KCL/ LASIX [Concomitant]
     Indication: OEDEMA
  8. TYLENOL [Concomitant]
  9. HYDROXYZINE [Concomitant]
  10. CARVEDILOL [Concomitant]
  11. ISOSORBIDE [Concomitant]
  12. ACIDOPHILUS [Concomitant]
  13. VITAMIN B12 [Concomitant]
  14. GLUCOSAMINE SULFATE [Concomitant]
  15. TOVIAZ [Concomitant]
  16. FAMOTIDINE [Concomitant]

REACTIONS (1)
  - Upper gastrointestinal haemorrhage [Recovered/Resolved]
